FAERS Safety Report 5692580-3 (Version None)
Quarter: 2008Q2

REPORT INFORMATION
  Report Type: 
  Country: None (occurrence: None)
  Receive Date: 20080401
  Receipt Date: 20080326
  Transmission Date: 20081010
  Serious: Yes (Death, Other)
  Sender: FDA-Public Use
  Company Number: 2008SP004900

PATIENT
  Age: 52 Year
  Sex: Male
  Weight: 128.4 kg

DRUGS (14)
  1. PEG-INTRON [Suspect]
     Indication: HEPATITIS C
     Dosage: 120 MCG;SC
     Route: 058
  2. REBETOL [Suspect]
     Indication: HEPATITIS C
     Dosage: 1000 MG;QD;PO
     Route: 048
  3. KLONOPIN [Concomitant]
  4. REMERON [Concomitant]
  5. GLYBURIDE [Concomitant]
  6. GLUCOPHAGE [Concomitant]
  7. METHADONE HCL [Concomitant]
  8. VICODIN [Concomitant]
  9. TYLENOL (CAPLET) [Concomitant]
  10. CLOBETASOL PROPIONATE [Concomitant]
  11. LASIX [Concomitant]
  12. COMPAZINE [Concomitant]
  13. ALBUTEROL [Concomitant]
  14. LOMOTIL [Concomitant]

REACTIONS (17)
  - ABDOMINAL DISTENSION [None]
  - ASCITES [None]
  - ASPARTATE AMINOTRANSFERASE INCREASED [None]
  - BLOOD ALKALINE PHOSPHATASE INCREASED [None]
  - BLOOD CALCIUM DECREASED [None]
  - BLOOD POTASSIUM DECREASED [None]
  - BLOOD SODIUM DECREASED [None]
  - CONFUSIONAL STATE [None]
  - DECREASED APPETITE [None]
  - DIARRHOEA [None]
  - FATIGUE [None]
  - HAEMOGLOBIN DECREASED [None]
  - RED BLOOD CELL COUNT DECREASED [None]
  - RHONCHI [None]
  - UNRESPONSIVE TO STIMULI [None]
  - VOMITING [None]
  - WHITE BLOOD CELL COUNT DECREASED [None]
